FAERS Safety Report 9478037 (Version 1)
Quarter: 2013Q3

REPORT INFORMATION
  Report Type: Spontaneous
  Country: US (occurrence: None)
  Receive Date: 20130822
  Receipt Date: 20130822
  Transmission Date: 20140515
  Serious: Yes (Life-Threatening, Hospitalization)
  Sender: FDA-Public Use
  Company Number: USA/USA/13/0034174

PATIENT
  Age: 56 Year
  Sex: Female

DRUGS (4)
  1. LEVOFLOXACIN [Suspect]
     Indication: PNEUMONIA
     Dosage: 500MG, 1 IN 1D, ORAL
     Route: 048
  2. METFORMIN (METFORMIN) [Concomitant]
  3. OMEPRAZOLE (OMEPRAZOLE) [Concomitant]
  4. LEVOTHYROXINE (LEVOTHYROXINE) [Concomitant]

REACTIONS (4)
  - Hypoglycaemia [None]
  - Unresponsive to stimuli [None]
  - Renal failure [None]
  - Somnolence [None]
